FAERS Safety Report 23766511 (Version 2)
Quarter: 2024Q2

REPORT INFORMATION
  Report Type: Spontaneous
  Country: US (occurrence: US)
  Receive Date: 20240422
  Receipt Date: 20240608
  Transmission Date: 20240715
  Serious: Yes (Other)
  Sender: FDA-Public Use
  Company Number: US-ABBVIE-5727283

PATIENT
  Age: 24 Year
  Sex: Female

DRUGS (1)
  1. LILETTA [Suspect]
     Active Substance: LEVONORGESTREL
     Indication: Product used for unknown indication
     Dosage: TIME INTERVAL: AS NECESSARY
     Route: 015
     Dates: start: 20240417, end: 20240417

REACTIONS (2)
  - Uterine perforation [Recovering/Resolving]
  - Device expulsion [Recovering/Resolving]

NARRATIVE: CASE EVENT DATE: 20240417
